FAERS Safety Report 25555859 (Version 1)
Quarter: 2025Q3

REPORT INFORMATION
  Report Type: Spontaneous
  Country: US (occurrence: US)
  Receive Date: 20250715
  Receipt Date: 20250715
  Transmission Date: 20251021
  Serious: No
  Sender: SANOFI AVENTIS
  Company Number: US-SA-2025SA197167

PATIENT
  Age: 5 Year
  Sex: Female

DRUGS (1)
  1. DUPIXENT [Suspect]
     Active Substance: DUPILUMAB
     Indication: Asthma
     Dosage: 300 MG, Q4W(EVERY 28 DAYS)
     Route: 058
     Dates: start: 20250315, end: 202505

REACTIONS (1)
  - Infection parasitic [Recovered/Resolved]

NARRATIVE: CASE EVENT DATE: 20250601
